FAERS Safety Report 22711021 (Version 2)
Quarter: 2023Q4

REPORT INFORMATION
  Report Type: Spontaneous
  Country: BR (occurrence: BR)
  Receive Date: 20230717
  Receipt Date: 20231110
  Transmission Date: 20240109
  Serious: Yes (Other)
  Sender: FDA-Public Use
  Company Number: BR-Zuellig Korea-ATNAHS20230702133

PATIENT
  Age: 42 Year
  Sex: Male

DRUGS (5)
  1. VALIUM [Suspect]
     Active Substance: DIAZEPAM
     Indication: Insomnia
     Route: 048
     Dates: end: 20230708
  2. VALIUM [Suspect]
     Active Substance: DIAZEPAM
     Route: 048
     Dates: start: 202310
  3. PHENYTOIN SODIUM [Concomitant]
     Active Substance: PHENYTOIN SODIUM
     Indication: Seizure
     Dates: start: 2023
  4. PHENOBARBITAL [Concomitant]
     Active Substance: PHENOBARBITAL
     Indication: Seizure
     Dates: start: 2023
  5. Dialudon [Concomitant]
     Indication: Seizure
     Dosage: 200MG FENOBARBITAL PLUS 200MG HIDANTAL PLUS DIAZEPAM (DIALUDON)(UNTIL 2003)
     Route: 065
     Dates: end: 2023

REACTIONS (7)
  - Drug dependence [Not Recovered/Not Resolved]
  - Glaucoma [Not Recovered/Not Resolved]
  - Dizziness [Recovered/Resolved]
  - Dizziness [Recovered/Resolved]
  - Incorrect product administration duration [Unknown]
  - Product availability issue [Recovered/Resolved]
  - Product use in unapproved indication [Unknown]

NARRATIVE: CASE EVENT DATE: 20140101
